FAERS Safety Report 12686396 (Version 2)
Quarter: 2016Q3

REPORT INFORMATION
  Report Type: Spontaneous
  Country: US (occurrence: US)
  Receive Date: 20160825
  Receipt Date: 20160912
  Transmission Date: 20161109
  Serious: No
  Sender: FDA-Public Use
  Company Number: US-JAZZ-2016-US-006928

PATIENT
  Sex: Female

DRUGS (23)
  1. DEXEDRINE [Concomitant]
     Active Substance: DEXTROAMPHETAMINE SULFATE
  2. ASPIRIN. [Concomitant]
     Active Substance: ASPIRIN
  3. METHOCARBAMOL. [Concomitant]
     Active Substance: METHOCARBAMOL
  4. LOVAZA [Concomitant]
     Active Substance: OMEGA-3-ACID ETHYL ESTERS
  5. VITAMIN E [Concomitant]
     Active Substance: .ALPHA.-TOCOPHEROL
  6. XANAX [Concomitant]
     Active Substance: ALPRAZOLAM
  7. PROVIGIL [Concomitant]
     Active Substance: MODAFINIL
  8. GABAPENTIN. [Concomitant]
     Active Substance: GABAPENTIN
  9. PERCOCET [Concomitant]
     Active Substance: ACETAMINOPHEN\OXYCODONE HYDROCHLORIDE
  10. SAVELLA [Concomitant]
     Active Substance: MILNACIPRAN HYDROCHLORIDE
  11. XYREM [Suspect]
     Active Substance: SODIUM OXYBATE
     Dosage: 3.75 G, BID
     Route: 048
     Dates: start: 201003
  12. OMEPRAZOLE DR [Concomitant]
     Active Substance: OMEPRAZOLE
  13. XYREM [Suspect]
     Active Substance: SODIUM OXYBATE
     Indication: NARCOLEPSY
     Dosage: 2.25 G, BID
     Route: 048
     Dates: start: 200911, end: 200912
  14. XYREM [Suspect]
     Active Substance: SODIUM OXYBATE
     Indication: CATAPLEXY
     Dosage: DOSE ADJUSTMENTS
     Route: 048
  15. ZOLPIDEM TARTRATE. [Concomitant]
     Active Substance: ZOLPIDEM TARTRATE
  16. FOLIC ACID. [Concomitant]
     Active Substance: FOLIC ACID
  17. TOPROL XL [Concomitant]
     Active Substance: METOPROLOL SUCCINATE
  18. ZYRTEC [Concomitant]
     Active Substance: CETIRIZINE HYDROCHLORIDE
  19. IRON [Concomitant]
     Active Substance: IRON
  20. TEMAZEPAM. [Concomitant]
     Active Substance: TEMAZEPAM
  21. OASIS TEARS PLUS [Concomitant]
     Active Substance: GLYCERIN
  22. PROZAC [Concomitant]
     Active Substance: FLUOXETINE HYDROCHLORIDE
  23. LEVOTHYROXINE. [Concomitant]
     Active Substance: LEVOTHYROXINE

REACTIONS (1)
  - Laryngitis [Not Recovered/Not Resolved]
